FAERS Safety Report 6414662-0 (Version None)
Quarter: 2009Q4

REPORT INFORMATION
  Report Type: 
  Country: None (occurrence: None)
  Receive Date: 20091026
  Receipt Date: 20091015
  Transmission Date: 20100525
  Serious: Yes (Other)
  Sender: FDA-Public Use
  Company Number: FR-GILEAD-2009-0024889

PATIENT
  Age: 35 Year
  Sex: Female

DRUGS (2)
  1. ATRIPLA [Suspect]
     Indication: HIV INFECTION
  2. TRIZIVIR [Concomitant]

REACTIONS (2)
  - MALAISE [None]
  - TACHYCARDIA [None]
